FAERS Safety Report 5881163-8 (Version None)
Quarter: 2008Q3

REPORT INFORMATION
  Report Type: 
  Country: None (occurrence: None)
  Receive Date: 20080912
  Receipt Date: 20080602
  Transmission Date: 20090109
  Serious: No
  Sender: FDA-Public Use
  Company Number: US-ABBOTT-08P-163-0458811-00

PATIENT
  Sex: Female
  Weight: 70.37 kg

DRUGS (3)
  1. HUMIRA [Suspect]
     Indication: CROHN'S DISEASE
     Dosage: 2 PENS IN 1 WEEK, THEN SKIP 1 WEEK, THEN TAKE 1 THEN EVERY TWO WEEKS
     Route: 050
     Dates: start: 20080619
  2. IMODIUM [Concomitant]
     Indication: DIARRHOEA
     Route: 048
  3. IMODIUM [Concomitant]
     Indication: CROHN'S DISEASE

REACTIONS (2)
  - INJECTION SITE PAIN [None]
  - PAIN IN EXTREMITY [None]
